FAERS Safety Report 4948924-0 (Version None)
Quarter: 2006Q1

REPORT INFORMATION
  Report Type: 
  Country: None (occurrence: None)
  Receive Date: 20060321
  Receipt Date: 20060313
  Transmission Date: 20060701
  Serious: Yes (Other)
  Sender: FDA-Public Use
  Company Number: PHBS2006PE04023

PATIENT
  Age: 77 Year
  Sex: Female

DRUGS (6)
  1. LESCOL XL [Suspect]
     Indication: HYPERCHOLESTEROLAEMIA
     Dosage: 80 MG/DAY
     Route: 048
  2. ASPIRIN [Concomitant]
  3. IRRIGOR [Concomitant]
  4. ENALAPRIL MALEATE [Concomitant]
  5. MIRTAZAPINE [Concomitant]
  6. OLAZEPIN [Concomitant]

REACTIONS (1)
  - INTERNATIONAL NORMALISED RATIO INCREASED [None]
